FAERS Safety Report 6187070-8 (Version None)
Quarter: 2009Q2

REPORT INFORMATION
  Report Type: 
  Country: None (occurrence: None)
  Receive Date: 20090512
  Receipt Date: 20090430
  Transmission Date: 20091009
  Serious: Yes (Hospitalization)
  Sender: FDA-Public Use
  Company Number: DE-PFIZER INC-2009152543

PATIENT
  Age: 61 Year

DRUGS (8)
  1. BLINDED *PLACEBO [Suspect]
     Indication: CARDIAC FAILURE
     Dosage: UNK
     Route: 048
     Dates: start: 20080327
  2. BLINDED EPLERENONE [Suspect]
     Indication: CARDIAC FAILURE
     Dosage: UNK
     Route: 048
     Dates: start: 20080327
  3. ATACAND [Concomitant]
     Dosage: UNK
     Route: 048
     Dates: start: 20080327
  4. BISOPROLOL [Concomitant]
     Dosage: UNK
     Route: 048
     Dates: start: 20080123
  5. MARCUMAR [Concomitant]
     Dosage: UNK
     Route: 048
     Dates: start: 20070927
  6. TORASEMIDE [Concomitant]
     Dosage: UNK
     Route: 048
     Dates: start: 20080327
  7. LEVOTHYROXINE SODIUM [Concomitant]
     Dosage: 150 UNK, UNK
     Route: 048
     Dates: start: 20070409
  8. VIGANTOLETTEN ^MERCK^ [Concomitant]
     Dosage: UNK
     Route: 048
     Dates: start: 20081001

REACTIONS (1)
  - TYPE 2 DIABETES MELLITUS [None]
